FAERS Safety Report 24756030 (Version 1)
Quarter: 2024Q4

REPORT INFORMATION
  Report Type: Report from Study
  Country: US (occurrence: US)
  Receive Date: 20241219
  Receipt Date: 20241219
  Transmission Date: 20250115
  Serious: Yes (Other)
  Sender: ABBVIE
  Company Number: US-ABBVIE-6050307

PATIENT
  Age: 38 Year
  Sex: Female

DRUGS (1)
  1. SKYRIZI [Suspect]
     Active Substance: RISANKIZUMAB-RZAA
     Indication: Psoriasis
     Route: 058
     Dates: start: 20230228

REACTIONS (4)
  - Hysterectomy [Recovering/Resolving]
  - Flatulence [Unknown]
  - Gastrointestinal disorder [Unknown]
  - Procedural pain [Unknown]

NARRATIVE: CASE EVENT DATE: 20241201
